FAERS Safety Report 9095809 (Version 1)
Quarter: 2013Q1

REPORT INFORMATION
  Report Type: Other
  Country: CA (occurrence: CA)
  Receive Date: 20130219
  Receipt Date: 20130219
  Transmission Date: 20140127
  Serious: Yes (Other)
  Sender: FDA-Public Use
  Company Number: CA-NAPPMUNDI-CAN-2013-0003766

PATIENT
  Sex: Female

DRUGS (2)
  1. OXYNEO [Suspect]
     Indication: PAIN
     Dosage: 80 MG, BID
  2. METHADONE [Concomitant]
     Indication: PAIN
     Dosage: 100 ML, UNK
     Dates: start: 2012

REACTIONS (9)
  - Drug dependence [Unknown]
  - Pneumonia [Unknown]
  - Drug ineffective [Unknown]
  - Drug withdrawal syndrome [Unknown]
  - Drug tolerance [Unknown]
  - Pain [Unknown]
  - Influenza like illness [Unknown]
  - Tremor [Unknown]
  - Malaise [Unknown]
